FAERS Safety Report 9209593 (Version 1)
Quarter: 2013Q2

REPORT INFORMATION
  Report Type: Spontaneous
  Country: CL (occurrence: CL)
  Receive Date: 20130404
  Receipt Date: 20130404
  Transmission Date: 20140414
  Serious: Yes (Hospitalization, Other)
  Sender: FDA-Public Use
  Company Number: CL-BRISTOL-MYERS SQUIBB COMPANY-18719815

PATIENT
  Age: 49 Year
  Sex: Female

DRUGS (8)
  1. ORENCIA [Suspect]
     Indication: RHEUMATOID ARTHRITIS
     Dates: start: 201108
  2. PREDNISONE [Concomitant]
  3. OMEPRAZOLE [Concomitant]
  4. XARELTO [Concomitant]
  5. TRAMADOL HCL + ACETAMINOPHEN [Concomitant]
  6. FISIOFER [Concomitant]
  7. FOLIPER [Concomitant]
  8. LEFLUNOMIDE [Concomitant]

REACTIONS (3)
  - Arthropathy [Unknown]
  - Anaemia [Unknown]
  - Post procedural haemorrhage [Unknown]
